FAERS Safety Report 5806755-3 (Version None)
Quarter: 2008Q3

REPORT INFORMATION
  Report Type: 
  Country: None (occurrence: None)
  Receive Date: 20080709
  Receipt Date: 20080709
  Transmission Date: 20090109
  Serious: Yes (Life-Threatening, Hospitalization, Other)
  Sender: FDA-Public Use
  Company Number: None

PATIENT
  Age: 33 Year
  Sex: Male
  Weight: 78.9259 kg

DRUGS (1)
  1. MIRTAZAPINE [Suspect]
     Indication: DRUG PRESCRIBING ERROR
     Dosage: 1-2 TABS AT NIGHT EVERYDAY PO HAD TO STOP ONE MONTH
     Route: 048
     Dates: start: 20080522, end: 20080618

REACTIONS (8)
  - ANXIETY [None]
  - DIZZINESS [None]
  - DRUG PRESCRIBING ERROR [None]
  - HOT FLUSH [None]
  - MYOCLONUS [None]
  - NIGHTMARE [None]
  - STOMATITIS [None]
  - SUICIDAL IDEATION [None]
